FAERS Safety Report 7269775-0 (Version None)
Quarter: 2011Q1

REPORT INFORMATION
  Report Type: 
  Country: None (occurrence: None)
  Receive Date: 20110126
  Receipt Date: 20110114
  Transmission Date: 20110831
  Serious: No
  Sender: FDA-Public Use
  Company Number: CA-1184536

PATIENT
  Sex: Female

DRUGS (3)
  1. PRED FORTE [Concomitant]
  2. NEVANAC [Suspect]
     Indication: CATARACT OPERATION
     Dosage: 1 GTT QID OPHTHALMIC
     Route: 047
  3. VIGAMOX [Concomitant]

REACTIONS (2)
  - CORNEAL DISORDER [None]
  - CORNEAL OEDEMA [None]
